FAERS Safety Report 8117413 (Version 4)
Quarter: 2014Q2

REPORT INFORMATION
  Report Type: Spontaneous
  Country: US (occurrence: US)
  Receive Date: 20110901
  Receipt Date: 20140611
  Transmission Date: 20141212
  Serious: Yes (Hospitalization, Other)
  Sender: FDA-Public Use
  Company Number: US-GLAXOSMITHKLINE-A0943047A

PATIENT
  Age: 74 Year
  Sex: Female

DRUGS (1)
  1. AVANDIA [Suspect]
     Indication: DIABETES MELLITUS
     Dosage: 4MG PER DAY
     Route: 048
     Dates: start: 200001, end: 201009

REACTIONS (4)
  - Cardiac failure congestive [Not Recovered/Not Resolved]
  - Coronary artery bypass [Unknown]
  - Coronary artery disease [Unknown]
  - Pleural effusion [Unknown]
